FAERS Safety Report 5360351-3 (Version None)
Quarter: 2007Q2

REPORT INFORMATION
  Report Type: 
  Country: None (occurrence: None)
  Receive Date: 20070614
  Receipt Date: 20070607
  Transmission Date: 20071010
  Serious: Yes (Other)
  Sender: FDA-Public Use
  Company Number: 013506

PATIENT
  Age: 44 Year
  Sex: Female

DRUGS (3)
  1. NORDETTE-28 [Suspect]
     Indication: ORAL CONTRACEPTION
     Dosage: 1 TABLET, QD, ORAL
     Route: 048
     Dates: start: 19970101
  2. TRILEPTAL [Concomitant]
  3. LYRICA [Concomitant]

REACTIONS (5)
  - BLOOD OESTROGEN DECREASED [None]
  - DRUG INTERACTION [None]
  - MENSTRUATION IRREGULAR [None]
  - OLIGOMENORRHOEA [None]
  - TRIGEMINAL NEURALGIA [None]
